FAERS Safety Report 5077843-7 (Version None)
Quarter: 2006Q3

REPORT INFORMATION
  Report Type: 
  Country: None (occurrence: None)
  Receive Date: 20060807
  Receipt Date: 20060725
  Transmission Date: 20061208
  Serious: Yes (Hospitalization)
  Sender: FDA-Public Use
  Company Number: 2006091576

PATIENT
  Age: 81 Year
  Sex: Female
  Weight: 40 kg

DRUGS (6)
  1. LINEZOLID [Suspect]
     Indication: INFECTION PARASITIC
     Dosage: 1200 MG (600 MG, 2 IN 1 D), ORAL
     Route: 048
     Dates: start: 20060324, end: 20060403
  2. LASIX [Concomitant]
  3. FRAGMIN [Concomitant]
  4. ATACAND [Concomitant]
  5. ACETAMINOPHEN [Concomitant]
  6. TRAMADOL HCL [Concomitant]

REACTIONS (1)
  - HAEMOLYTIC ANAEMIA [None]
